FAERS Safety Report 14744023 (Version 1)
Quarter: 2018Q2

REPORT INFORMATION
  Report Type: Spontaneous
  Country: FR (occurrence: FR)
  Receive Date: 20180411
  Receipt Date: 20180411
  Transmission Date: 20180711
  Serious: Yes (Hospitalization)
  Sender: FDA-Public Use
  Company Number: FR-AUROBINDO-AUR-APL-2018-018198

PATIENT
  Age: 90 Year
  Sex: Female

DRUGS (3)
  1. ALLOPURINOL TABLETS 100 MG [Suspect]
     Active Substance: ALLOPURINOL
     Indication: PRODUCT USED FOR UNKNOWN INDICATION
     Dosage: 1 DOSAGE FORM
     Route: 048
     Dates: end: 201803
  2. IRBESARTAN HYDROCHLOROTHIAZIDE [Suspect]
     Active Substance: HYDROCHLOROTHIAZIDE\IRBESARTAN
     Indication: HYPERTENSION
     Dosage: 1 DOSAGE FORM
     Route: 048
     Dates: start: 2016
  3. ATENOLOL FILM-COATED TABLET 100MG [Suspect]
     Active Substance: ATENOLOL
     Indication: HYPERTENSION
     Dosage: 1 DOSAGE FORM, DAILY
     Route: 048
     Dates: start: 2016

REACTIONS (5)
  - Rash [Unknown]
  - Pruritus [Unknown]
  - Haemorrhage [Unknown]
  - Suicidal ideation [Unknown]
  - Skin lesion [Unknown]

NARRATIVE: CASE EVENT DATE: 2016
